FAERS Safety Report 11151189 (Version 1)
Quarter: 2015Q2

REPORT INFORMATION
  Report Type: Spontaneous
  Country: US (occurrence: None)
  Receive Date: 20150529
  Receipt Date: 20150529
  Transmission Date: 20150821
  Serious: Yes (Other)
  Sender: FDA-Public Use
  Company Number: None

PATIENT
  Sex: Female
  Weight: 72.58 kg

DRUGS (13)
  1. RISPERDAL [Suspect]
     Active Substance: RISPERIDONE
     Indication: PARANOIA
     Dosage: 2 TABS/DAY ONE A DAY AT NIGHT
     Route: 048
  2. METOPROLOL [Concomitant]
     Active Substance: METOPROLOL
  3. METAPROLOL [Concomitant]
  4. PAXIL [Concomitant]
     Active Substance: PAROXETINE HYDROCHLORIDE
  5. ALKA SELTZER [Concomitant]
     Active Substance: ANHYDROUS CITRIC ACID\ASPIRIN\SODIUM BICARBONATE
  6. VITAMIN B COMPLEX [Concomitant]
     Active Substance: CYANOCOBALAMIN\DEXPANTHENOL\NIACINAMIDE\PYRIDOXINE HYDROCHLORIDE\RIBOFLAVIN 5^-PHOSPHATE SODIUM\THIAMINE HYDROCHLORIDE\VITAMIN B COMPLEX
  7. ALYMI [Concomitant]
  8. TYLENOL [Concomitant]
     Active Substance: ACETAMINOPHEN
  9. STOOL SOFTENER [Concomitant]
     Active Substance: DOCUSATE CALCIUM
  10. GLYMPYRIDINE [Concomitant]
  11. C [Concomitant]
  12. VITAMIN D [Concomitant]
     Active Substance: CHOLECALCIFEROL
  13. PYRIDINE [Concomitant]

REACTIONS (8)
  - Impaired work ability [None]
  - Product quality issue [None]
  - Product substitution issue [None]
  - Cognitive disorder [None]
  - Mydriasis [None]
  - Panic attack [None]
  - Disturbance in attention [None]
  - Feeling abnormal [None]
